FAERS Safety Report 13273363 (Version 1)
Quarter: 2017Q1

REPORT INFORMATION
  Report Type: Report from Study
  Country: US (occurrence: US)
  Receive Date: 20170227
  Receipt Date: 20170227
  Transmission Date: 20170428
  Serious: Yes (Hospitalization)
  Sender: FDA-Public Use
  Company Number: US-SA-2017SA031891

PATIENT
  Age: 42 Year

DRUGS (1)
  1. MYOZYME [Suspect]
     Active Substance: ALGLUCOSIDASE ALFA
     Indication: GLYCOGEN STORAGE DISEASE TYPE II
     Dosage: DOSE: 1400.00 (UNITS NOT PROVIDED)?FREQUENCY: Q2
     Route: 041

REACTIONS (4)
  - Chest pain [Recovered/Resolved]
  - Electrocardiogram abnormal [Recovered/Resolved]
  - Dyspnoea [Recovered/Resolved]
  - Troponin increased [Recovered/Resolved]

NARRATIVE: CASE EVENT DATE: 2017
